FAERS Safety Report 21228512 (Version 1)
Quarter: 2022Q3

REPORT INFORMATION
  Report Type: Spontaneous
  Country: ES (occurrence: ES)
  Receive Date: 20220818
  Receipt Date: 20220818
  Transmission Date: 20221026
  Serious: Yes (Life-Threatening, Hospitalization)
  Sender: FDA-Public Use
  Company Number: ES-SUN PHARMACEUTICAL INDUSTRIES LTD-2022RR-349083

PATIENT
  Age: 67 Year
  Sex: Male

DRUGS (6)
  1. SERTRALINE [Suspect]
     Active Substance: SERTRALINE HYDROCHLORIDE
     Indication: Dementia
     Dosage: 50 MILLIGRAM, DAILY
     Route: 048
     Dates: start: 202201
  2. SINEMET [Suspect]
     Active Substance: CARBIDOPA\LEVODOPA
     Indication: Dementia
     Dosage: 3 DOSAGE FORM, DAILY
     Route: 048
     Dates: start: 202201
  3. LEVETIRACETAM [Suspect]
     Active Substance: LEVETIRACETAM
     Indication: Dementia
     Dosage: 1.5 MILLIGRAM, DAILY
     Route: 048
     Dates: start: 202103
  4. SOLIFENACIN\TAMSULOSIN [Suspect]
     Active Substance: SOLIFENACIN\TAMSULOSIN
     Indication: Benign prostatic hyperplasia
     Dosage: 1 DOSAGE FORM, DAILY
     Route: 048
     Dates: start: 201606
  5. NOCTAMID 1 mg TABLETS , 30 tablets [Concomitant]
     Indication: Insomnia
     Dosage: 1 MILLIGRAM, DAILY
     Route: 048
     Dates: start: 201904
  6. TRAZODONE HYDROCHLORIDE [Suspect]
     Active Substance: TRAZODONE HYDROCHLORIDE
     Indication: Dementia
     Dosage: 100 MILLIGRAM, DAILY
     Route: 048
     Dates: start: 202201

REACTIONS (1)
  - Atrioventricular block complete [Recovered/Resolved with Sequelae]

NARRATIVE: CASE EVENT DATE: 20220615
